FAERS Safety Report 15203915 (Version 6)
Quarter: 2024Q1

REPORT INFORMATION
  Report Type: Spontaneous
  Country: JP (occurrence: JP)
  Receive Date: 20180726
  Receipt Date: 20240102
  Transmission Date: 20240410
  Serious: Yes (Life-Threatening, Hospitalization, Other)
  Sender: FDA-Public Use
  Company Number: JP-SANOFI-2018SA061012

PATIENT
  Age: 2 Year
  Sex: Female
  Weight: 7.6 kg

DRUGS (17)
  1. SABRIL [Suspect]
     Active Substance: VIGABATRIN
     Indication: Infantile spasms
     Dosage: 225 MG, BID
     Route: 048
     Dates: start: 20171016, end: 20180506
  2. SABRIL [Suspect]
     Active Substance: VIGABATRIN
     Indication: Infantile spasms
     Dosage: 190 MG, BID
     Route: 048
     Dates: start: 20170524, end: 20170604
  3. SABRIL [Suspect]
     Active Substance: VIGABATRIN
     Dosage: 380 MG, BID
     Route: 048
     Dates: start: 20170605, end: 20170618
  4. SABRIL [Suspect]
     Active Substance: VIGABATRIN
     Dosage: 475 MG, BID
     Route: 048
     Dates: start: 20170619, end: 20170702
  5. SABRIL [Suspect]
     Active Substance: VIGABATRIN
     Dosage: 575 MG, BID
     Route: 048
     Dates: start: 20170703, end: 20170730
  6. SABRIL [Suspect]
     Active Substance: VIGABATRIN
     Dosage: 375 MG, BID
     Route: 048
     Dates: start: 20170731, end: 20170813
  7. SABRIL [Suspect]
     Active Substance: VIGABATRIN
     Dosage: 200 MG, BID
     Route: 048
     Dates: start: 20170814, end: 20170816
  8. SABRIL [Suspect]
     Active Substance: VIGABATRIN
     Dosage: 375 MG, BID
     Route: 048
     Dates: start: 20170817, end: 20170924
  9. SABRIL [Suspect]
     Active Substance: VIGABATRIN
     Dosage: 300 MG, BID
     Route: 048
     Dates: start: 20170925, end: 20171015
  10. SABRIL [Suspect]
     Active Substance: VIGABATRIN
     Dosage: 125 MG, BID
     Route: 048
     Dates: start: 20180507, end: 20180607
  11. SABRIL [Suspect]
     Active Substance: VIGABATRIN
     Dosage: 75 MG, BID
     Route: 048
     Dates: start: 20180608, end: 20180701
  12. VALPROATE SODIUM [Concomitant]
     Active Substance: VALPROATE SODIUM
     Indication: Infantile spasms
     Dosage: 350 MG
     Route: 048
     Dates: start: 20161024
  13. VALPROATE SODIUM [Concomitant]
     Active Substance: VALPROATE SODIUM
     Indication: Infantile spasms
  14. ZONISAMIDE [Concomitant]
     Active Substance: ZONISAMIDE
     Indication: Infantile spasms
     Dosage: 100 UNK
     Route: 048
     Dates: start: 20170403
  15. ZONISAMIDE [Concomitant]
     Active Substance: ZONISAMIDE
     Indication: Infantile spasms
  16. CARNITINE CHLORIDE [Concomitant]
     Active Substance: CARNITINE CHLORIDE
     Indication: Infantile spasms
     Dosage: UNK MG
     Route: 048
     Dates: start: 20170817
  17. CARNITINE CHLORIDE [Concomitant]
     Active Substance: CARNITINE CHLORIDE
     Indication: Infantile spasms

REACTIONS (2)
  - Pneumonia influenzal [Recovered/Resolved]
  - Hyperlipidaemia [Recovered/Resolved]

NARRATIVE: CASE EVENT DATE: 20171106
